FAERS Safety Report 5627079-3 (Version None)
Quarter: 2008Q1

REPORT INFORMATION
  Report Type: 
  Country: None (occurrence: None)
  Receive Date: 20080115
  Receipt Date: 20070703
  Transmission Date: 20080703
  Serious: Yes (Other)
  Sender: FDA-Public Use
  Company Number: 2007055358

PATIENT
  Age: 67 Year
  Sex: Female
  Weight: 82 kg

DRUGS (10)
  1. AROMASIN [Suspect]
     Indication: BREAST CANCER
     Dosage: 25 MG (25 MG,1 IN 1 D),ORAL
     Route: 048
     Dates: start: 20070401, end: 20070701
  2. HYZAAR [Concomitant]
  3. LESCOL [Concomitant]
  4. TRICOR [Concomitant]
  5. NEXIUM [Concomitant]
  6. FE (TEGAFUR) [Concomitant]
  7. ACETYLSALICYLIC ACID SRT [Concomitant]
  8. MULTIVITAMIN [Concomitant]
  9. OMACOR [Concomitant]
  10. METAGLIP (GLIPIZIDE, METFORMIN HYDROCHLORIDE) [Concomitant]

REACTIONS (3)
  - COUGH [None]
  - HYPERTENSION [None]
  - WEIGHT INCREASED [None]
